FAERS Safety Report 5012579-X (Version None)
Quarter: 2006Q2

REPORT INFORMATION
  Report Type: 
  Country: None (occurrence: None)
  Receive Date: 20060414
  Receipt Date: 20060111
  Transmission Date: 20061013
  Serious: No
  Sender: FDA-Public Use
  Company Number: 2006SP000171

PATIENT
  Age: 76 Year
  Sex: Female
  Weight: 72.5755 kg

DRUGS (6)
  1. LUNESTA [Suspect]
     Indication: INSOMNIA
     Dosage: 2 MG;HS;ORAL
     Route: 048
     Dates: start: 20051230
  2. DOXYCYCLINE [Suspect]
     Indication: LOWER RESPIRATORY TRACT INFECTION
     Dates: start: 20060102
  3. TAXOL [Concomitant]
  4. GEMZAR [Concomitant]
  5. WARFARIN SODIUM [Concomitant]
  6. SYNTHROID [Concomitant]

REACTIONS (2)
  - CHEST PAIN [None]
  - TACHYCARDIA [None]
